FAERS Safety Report 5919423-4 (Version None)
Quarter: 2008Q4

REPORT INFORMATION
  Report Type: 
  Country: None (occurrence: None)
  Receive Date: 20081015
  Receipt Date: 20081008
  Transmission Date: 20090506
  Serious: Yes (Other)
  Sender: FDA-Public Use
  Company Number: PHBS2008FR05935

PATIENT
  Age: 70 Year
  Sex: Male

DRUGS (5)
  1. CYCLOSPORINE [Suspect]
     Indication: RENAL TRANSPLANT
  2. BASILIXIMAB [Suspect]
     Indication: RENAL TRANSPLANT
  3. EVEROLIMUS [Suspect]
     Indication: RENAL TRANSPLANT
  4. MYCOPHENOLATE MOFETIL [Suspect]
     Indication: RENAL TRANSPLANT
  5. STEROIDS NOS [Concomitant]

REACTIONS (7)
  - CHRONIC ALLOGRAFT NEPHROPATHY [None]
  - CHRONIC LYMPHOCYTIC LEUKAEMIA [None]
  - COLITIS ULCERATIVE [None]
  - COMPLICATIONS OF TRANSPLANTED KIDNEY [None]
  - HAEMODIALYSIS [None]
  - LYMPHOCYTIC INFILTRATION [None]
  - URINARY TRACT INFECTION [None]
